FAERS Safety Report 16075217 (Version 1)
Quarter: 2019Q1

REPORT INFORMATION
  Report Type: Spontaneous
  Country: US (occurrence: US)
  Receive Date: 20190315
  Receipt Date: 20190315
  Transmission Date: 20190418
  Serious: No
  Sender: FDA-Public Use
  Company Number: US-BIOGEN-2019BI00708262

PATIENT
  Sex: Female

DRUGS (1)
  1. TECFIDERA [Suspect]
     Active Substance: DIMETHYL FUMARATE
     Indication: MULTIPLE SCLEROSIS
     Route: 065

REACTIONS (10)
  - Pain in extremity [Unknown]
  - Musculoskeletal pain [Unknown]
  - Visual impairment [Unknown]
  - Fatigue [Unknown]
  - Pain [Unknown]
  - Neck pain [Unknown]
  - Dry mouth [Unknown]
  - Muscular weakness [Unknown]
  - Stress [Unknown]
  - Tremor [Unknown]
